FAERS Safety Report 5576908-0 (Version None)
Quarter: 2007Q4

REPORT INFORMATION
  Report Type: 
  Country: None (occurrence: None)
  Receive Date: 20071130
  Receipt Date: 20070925
  Transmission Date: 20080405
  Serious: No
  Sender: FDA-Public Use
  Company Number: US200709006474

PATIENT
  Age: 42 Year
  Sex: Female
  Weight: 96.6 kg

DRUGS (4)
  1. BYETTA [Suspect]
     Indication: TYPE 2 DIABETES MELLITUS
     Dosage: 5 UG, 2/D, SUBCUTANEOUS; 10 UG, 2/D, SUBCUTANEOUS
     Route: 058
     Dates: start: 20061229, end: 20070201
  2. BYETTA [Suspect]
     Indication: TYPE 2 DIABETES MELLITUS
     Dosage: 5 UG, 2/D, SUBCUTANEOUS; 10 UG, 2/D, SUBCUTANEOUS
     Route: 058
     Dates: start: 20070201
  3. EXENATIDE 10MCG PEN, DISPOSABLE DEVICE (EXENATIDE PEN (10MCG)) PEN,DIS [Concomitant]
  4. METFORMIN HCL [Concomitant]

REACTIONS (7)
  - AMNESIA [None]
  - CARBON MONOXIDE POISONING [None]
  - DISTURBANCE IN ATTENTION [None]
  - ELECTROCARDIOGRAM ABNORMAL [None]
  - FACIAL PALSY [None]
  - FATIGUE [None]
  - NIGHTMARE [None]
